FAERS Safety Report 10419844 (Version 1)
Quarter: 2014Q3

REPORT INFORMATION
  Report Type: Other
  Country: FR (occurrence: FR)
  Receive Date: 20140829
  Receipt Date: 20140829
  Transmission Date: 20150326
  Serious: Yes (Hospitalization)
  Sender: FDA-Public Use
  Company Number: FR-MYLAN-2014M1002487

PATIENT

DRUGS (11)
  1. XANAX [Concomitant]
     Active Substance: ALPRAZOLAM
     Dosage: 1.5 MG, QD
  2. STILNOX [Suspect]
     Active Substance: ZOLPIDEM TARTRATE
     Dosage: 10 MG, QD
  3. GLIMEPIRIDE. [Suspect]
     Active Substance: GLIMEPIRIDE
     Dosage: 1 DF, TID
     Route: 048
     Dates: start: 200808, end: 20081003
  4. FLECAINE [Concomitant]
     Active Substance: FLECAINIDE
     Dosage: 100 MG, BID
  5. NISIS [Concomitant]
     Active Substance: VALSARTAN
     Dosage: 40 MG, QD
  6. SEROPLEX [Concomitant]
     Active Substance: ESCITALOPRAM OXALATE
     Dosage: 10 MG, QD
  7. CERIS [Concomitant]
     Active Substance: TROSPIUM CHLORIDE
     Dosage: 2 DF, QD
  8. MEPRONIZINE                        /00647801/ [Concomitant]
     Dosage: UNK
  9. DOLIPRANE [Concomitant]
     Active Substance: ACETAMINOPHEN
     Dosage: 2 G, QD
  10. AVLOCARDYL                         /00030001/ [Suspect]
     Active Substance: PROPRANOLOL HYDROCHLORIDE
     Dosage: 0.5 DF, PRN
     Route: 048
     Dates: start: 20081001, end: 20081002
  11. KARDEGIC [Concomitant]
     Active Substance: ASPIRIN LYSINE
     Dosage: 75 MG, QD

REACTIONS (3)
  - Medication error [Recovered/Resolved]
  - Sinus bradycardia [Recovered/Resolved]
  - Hypoglycaemia [Recovered/Resolved]

NARRATIVE: CASE EVENT DATE: 20081002
